FAERS Safety Report 9620885 (Version 6)
Quarter: 2014Q1

REPORT INFORMATION
  Report Type: Spontaneous
  Country: JP (occurrence: JP)
  Receive Date: 20131015
  Receipt Date: 20140320
  Transmission Date: 20141002
  Serious: Yes (Death, Life-Threatening, Other)
  Sender: FDA-Public Use
  Company Number: JP-AMGEN-JPNSP2013072360

PATIENT
  Age: 56 Year
  Sex: Female
  Weight: 57 kg

DRUGS (11)
  1. ENBREL [Suspect]
     Indication: RHEUMATOID ARTHRITIS
     Dosage: 25 MG, 2X/WEEK
     Route: 058
     Dates: start: 20070727, end: 20070904
  2. ENBREL [Suspect]
     Dosage: 25 MG, 2X/WEEK
     Route: 065
     Dates: start: 20070908, end: 20100422
  3. ENBREL [Suspect]
     Dosage: 25 MG, UNK
     Route: 065
     Dates: start: 20100501, end: 20101012
  4. ENBREL [Suspect]
     Dosage: 50 MG, UNK
     Route: 065
     Dates: start: 20101019, end: 20130917
  5. HYPEN                              /00613801/ [Concomitant]
     Dosage: 200 MG, 2X/DAY
     Route: 048
     Dates: start: 20020611, end: 20130917
  6. RIMATIL [Concomitant]
     Dosage: 100 MG, 2X/DAY
     Route: 048
     Dates: start: 20020611, end: 20130917
  7. AZULFIDINE [Concomitant]
     Dosage: 250 MG, 2X/DAY
     Route: 048
     Dates: start: 20050809, end: 20130917
  8. BLOPRESS [Concomitant]
     Dosage: 4 MG, 1X/DAY
     Route: 048
     Dates: start: 20070512, end: 20130917
  9. MUCOSTA [Concomitant]
     Dosage: UNK
     Route: 048
     Dates: start: 20030525, end: 20130917
  10. NORSPAN                            /00444001/ [Concomitant]
     Dosage: 5 MG, 1X/DAY
     Route: 062
     Dates: start: 20120821, end: 20130907
  11. BONALON [Concomitant]
     Dosage: 35 MG, WEEKLY
     Route: 048
     Dates: start: 20120821, end: 20130917

REACTIONS (3)
  - Pancreatic carcinoma [Fatal]
  - Metastases to liver [Fatal]
  - Osteoporosis [Recovered/Resolved]
